FAERS Safety Report 16472786 (Version 1)
Quarter: 2019Q2

REPORT INFORMATION
  Report Type: Spontaneous
  Country: US (occurrence: US)
  Receive Date: 20190514
  Receipt Date: 20190514
  Transmission Date: 20190711
  Serious: Yes (Hospitalization)
  Sender: FDA-Public Use
  Company Number: None

PATIENT
  Age: 76 Year
  Sex: Male
  Weight: 76.2 kg

DRUGS (1)
  1. APIXABAN [Suspect]
     Active Substance: APIXABAN
     Indication: ATRIAL FIBRILLATION
     Route: 048
     Dates: start: 20180711

REACTIONS (6)
  - Nasal injury [None]
  - Aggression [None]
  - Skin abrasion [None]
  - Intracranial haematoma [None]
  - Fall [None]
  - Haemorrhage intracranial [None]

NARRATIVE: CASE EVENT DATE: 20181004
